FAERS Safety Report 10922584 (Version 1)
Quarter: 2015Q1

REPORT INFORMATION
  Report Type: Report from Study
  Country: US (occurrence: US)
  Receive Date: 20150317
  Receipt Date: 20150317
  Transmission Date: 20150721
  Serious: No
  Sender: FDA-Public Use
  Company Number: US-ABBVIE-15P-163-1348726-00

PATIENT
  Age: 22 Year
  Sex: Female
  Weight: 52.21 kg

DRUGS (3)
  1. LUPANETA PACK [Suspect]
     Active Substance: ISOPROPYL ALCOHOL\LEUPROLIDE ACETATE\NORETHINDRONE ACETATE
     Indication: ENDOMETRIOSIS
     Route: 050
     Dates: start: 201411
  2. LUPANETA PACK [Suspect]
     Active Substance: ISOPROPYL ALCOHOL\LEUPROLIDE ACETATE\NORETHINDRONE ACETATE
     Indication: PRODUCT USED FOR UNKNOWN INDICATION
     Route: 048
     Dates: start: 201411
  3. IBUPROFEN. [Concomitant]
     Active Substance: IBUPROFEN
     Indication: PRODUCT USED FOR UNKNOWN INDICATION
     Route: 048

REACTIONS (6)
  - Anxiety [Not Recovered/Not Resolved]
  - Food craving [Not Recovered/Not Resolved]
  - Palpitations [Not Recovered/Not Resolved]
  - Tremor [Not Recovered/Not Resolved]
  - Night sweats [Not Recovered/Not Resolved]
  - Acne [Not Recovered/Not Resolved]

NARRATIVE: CASE EVENT DATE: 201501
